FAERS Safety Report 11282811 (Version 2)
Quarter: 2015Q3

REPORT INFORMATION
  Report Type: Report from Study
  Country: US (occurrence: US)
  Receive Date: 20150720
  Receipt Date: 20150819
  Transmission Date: 20151125
  Serious: Yes (Other)
  Sender: FDA-Public Use
  Company Number: US-BIOGENIDEC-2015BI099072

PATIENT
  Sex: Male

DRUGS (1)
  1. TYSABRI [Suspect]
     Active Substance: NATALIZUMAB
     Indication: MULTIPLE SCLEROSIS
     Route: 042

REACTIONS (5)
  - Impaired healing [Unknown]
  - Bone fistula [Unknown]
  - Tooth extraction [Unknown]
  - Dysgeusia [Unknown]
  - Pain [Unknown]

NARRATIVE: CASE EVENT DATE: 2014
